FAERS Safety Report 10531795 (Version 5)
Quarter: 2015Q1

REPORT INFORMATION
  Report Type: Report from Study
  Country: DK (occurrence: JP)
  Receive Date: 20141021
  Receipt Date: 20150210
  Transmission Date: 20150720
  Serious: Yes (Other)
  Sender: FDA-Public Use
  Company Number: JP-FRI-1000071522

PATIENT
  Sex: Female
  Weight: 55 kg

DRUGS (12)
  1. HALCION [Concomitant]
     Active Substance: TRIAZOLAM
     Indication: DEPRESSION
     Dosage: 0.25 MG
     Route: 048
     Dates: start: 20121006, end: 20130325
  2. ESCITALOPRAM [Suspect]
     Active Substance: ESCITALOPRAM OXALATE
     Indication: DEPRESSION
     Dosage: 10 MG
     Route: 048
     Dates: start: 20121006, end: 20121018
  3. SEROQUEL [Concomitant]
     Active Substance: QUETIAPINE FUMARATE
     Dosage: 100 MG
     Route: 048
     Dates: start: 20130612
  4. LANDSEN [Concomitant]
     Active Substance: CLONAZEPAM
     Dosage: 3 MG
     Route: 048
     Dates: start: 20130507
  5. SOLANAX [Suspect]
     Active Substance: ALPRAZOLAM
     Indication: DEPRESSION
     Dosage: 0.4 MG
     Route: 048
     Dates: start: 20130326, end: 20130506
  6. SEROQUEL [Concomitant]
     Active Substance: QUETIAPINE FUMARATE
     Dosage: 75 MG
     Route: 048
     Dates: start: 20130507, end: 20140611
  7. LEXOTAN [Suspect]
     Active Substance: BROMAZEPAM
     Indication: DEPRESSION
     Dosage: 5 MG
     Route: 048
     Dates: start: 20130326, end: 20130401
  8. SEROQUEL [Concomitant]
     Active Substance: QUETIAPINE FUMARATE
     Indication: DEPRESSION
     Dosage: 100 MG
     Route: 048
     Dates: start: 20121006, end: 20130325
  9. LANDSEN [Concomitant]
     Active Substance: CLONAZEPAM
     Indication: DEPRESSION
     Dosage: 3 MG
     Route: 048
     Dates: start: 20121006, end: 20130325
  10. SOLANAX [Suspect]
     Active Substance: ALPRAZOLAM
     Dosage: 1.2 MG
     Route: 048
     Dates: start: 20130402, end: 20130506
  11. SILECE [Concomitant]
     Active Substance: FLUNITRAZEPAM
     Indication: DEPRESSION
     Dosage: 2 MG
     Route: 048
     Dates: start: 20121006, end: 20130325
  12. ESCITALOPRAM [Suspect]
     Active Substance: ESCITALOPRAM OXALATE
     Dosage: 20 MG
     Route: 048
     Dates: start: 20121019, end: 20131121

REACTIONS (2)
  - Pregnancy [Unknown]
  - Abortion [Recovered/Resolved]
